FAERS Safety Report 16972062 (Version 2)
Quarter: 2019Q4

REPORT INFORMATION
  Report Type: Spontaneous
  Country: US (occurrence: US)
  Receive Date: 20191029
  Receipt Date: 20191105
  Transmission Date: 20200122
  Serious: Yes (Other)
  Sender: FDA-Public Use
  Company Number: US-LUNDBECK-DKLU3006724

PATIENT
  Sex: Female
  Weight: 40 kg

DRUGS (6)
  1. ONFI [Suspect]
     Active Substance: CLOBAZAM
     Route: 065
     Dates: start: 20150113
  2. ETHOSUXIMIDE. [Concomitant]
     Active Substance: ETHOSUXIMIDE
     Indication: LENNOX-GASTAUT SYNDROME
     Route: 065
     Dates: start: 20180523
  3. AMANTADINE. [Concomitant]
     Active Substance: AMANTADINE HYDROCHLORIDE
     Indication: LENNOX-GASTAUT SYNDROME
     Route: 065
     Dates: start: 20181028
  4. EPIDIOLEX [Concomitant]
     Active Substance: CANNABIDIOL
     Indication: LENNOX-GASTAUT SYNDROME
     Route: 065
     Dates: start: 20190124
  5. FELBAMATE. [Concomitant]
     Active Substance: FELBAMATE
     Indication: LENNOX-GASTAUT SYNDROME
     Route: 065
     Dates: start: 20150113
  6. ONFI [Suspect]
     Active Substance: CLOBAZAM
     Indication: LENNOX-GASTAUT SYNDROME
     Route: 065

REACTIONS (3)
  - Generalised tonic-clonic seizure [Not Recovered/Not Resolved]
  - Tonic convulsion [Not Recovered/Not Resolved]
  - Atonic seizures [Not Recovered/Not Resolved]

NARRATIVE: CASE EVENT DATE: 2008
